FAERS Safety Report 7525352-5 (Version None)
Quarter: 2011Q2

REPORT INFORMATION
  Report Type: 
  Country: None (occurrence: None)
  Receive Date: 20110602
  Receipt Date: 20110602
  Transmission Date: 20111010
  Serious: No
  Sender: FDA-Public Use
  Company Number: None

PATIENT
  Sex: Female
  Weight: 63.05 kg

DRUGS (1)
  1. SUBUTEX [Suspect]

REACTIONS (5)
  - PRODUCT SUBSTITUTION ISSUE [None]
  - DRUG EXPOSURE DURING PREGNANCY [None]
  - VOMITING [None]
  - NAUSEA [None]
  - PREGNANCY [None]
